FAERS Safety Report 7652986-X (Version None)
Quarter: 2011Q3

REPORT INFORMATION
  Report Type: 
  Country: None (occurrence: None)
  Receive Date: 20110803
  Receipt Date: 20110801
  Transmission Date: 20111222
  Serious: Yes (Death)
  Sender: FDA-Public Use
  Company Number: GB-PFIZER INC-2011175504

PATIENT
  Age: 55 Year
  Sex: Male

DRUGS (5)
  1. LYRICA [Suspect]
     Indication: PAIN
     Dosage: 100 MG, 4X/DAY
     Route: 048
  2. SERTRALINE [Concomitant]
     Dosage: 100 MG, 2X/DAY
     Route: 048
  3. TEMAZEPAM [Concomitant]
     Dosage: 40 MG, 1X/DAY
     Route: 048
  4. TADALAFIL [Concomitant]
     Dosage: UNK
     Route: 048
  5. LIDOCAINE [Concomitant]
     Dosage: 5 %, UNK
     Route: 061

REACTIONS (1)
  - SUDDEN DEATH [None]
